FAERS Safety Report 17785968 (Version 1)
Quarter: 2020Q2

REPORT INFORMATION
  Report Type: Report from Study
  Country: CN (occurrence: CN)
  Receive Date: 20200513
  Receipt Date: 20200513
  Transmission Date: 20200714
  Serious: Yes (Other)
  Sender: FDA-Public Use
  Company Number: CN-ROCHE-2114293

PATIENT
  Sex: Female
  Weight: 52 kg

DRUGS (2)
  1. AVASTIN [Suspect]
     Active Substance: BEVACIZUMAB
     Indication: COLORECTAL CANCER
     Route: 041
     Dates: start: 20180712
  2. AVASTIN [Suspect]
     Active Substance: BEVACIZUMAB
     Indication: ADENOCARCINOMA OF COLON
     Route: 042
     Dates: start: 20170929

REACTIONS (12)
  - Ill-defined disorder [Unknown]
  - Discomfort [Unknown]
  - Cardiac failure [Unknown]
  - Emphysema [Not Recovered/Not Resolved]
  - Cholecystitis [Not Recovered/Not Resolved]
  - Cholelithiasis [Unknown]
  - Decreased appetite [Unknown]
  - Asthenia [Unknown]
  - Pulmonary arterial hypertension [Unknown]
  - Cough [Not Recovered/Not Resolved]
  - Fatigue [Unknown]
  - Oedema peripheral [Unknown]
